FAERS Safety Report 5150362-5 (Version None)
Quarter: 2006Q4

REPORT INFORMATION
  Report Type: 
  Country: None (occurrence: None)
  Receive Date: 20061114
  Receipt Date: 20060830
  Transmission Date: 20070319
  Serious: Yes (Death)
  Sender: FDA-Public Use
  Company Number: GT-ELI_LILLY_AND_COMPANY-GT200609000017

PATIENT
  Age: 28 Year
  Sex: Female
  Weight: 54.421 kg

DRUGS (3)
  1. OLANZAPINE [Suspect]
     Indication: CONVERSION DISORDER
     Dosage: 5 MG, 2/D
     Route: 048
     Dates: start: 20060821, end: 20060822
  2. RIVOTRIL                                /NOR/ [Concomitant]
     Indication: DEPRESSION
     Dosage: 2 MG, DAILY (1/D)
     Route: 048
     Dates: start: 20060821, end: 20060821
  3. EPAMIN [Concomitant]
     Indication: CONVULSION
     Route: 042
     Dates: start: 20060819, end: 20060819

REACTIONS (3)
  - CARDIAC ARREST [None]
  - HYPOTENSION [None]
  - HYPOTONIA [None]
